FAERS Safety Report 4431707-8 (Version None)
Quarter: 2004Q3

REPORT INFORMATION
  Report Type: 
  Country: None (occurrence: None)
  Receive Date: 20040818
  Receipt Date: 20040802
  Transmission Date: 20050211
  Serious: Yes (Death)
  Sender: FDA-Public Use
  Company Number: USA040874277

PATIENT
  Age: 86 Year
  Sex: Male

DRUGS (1)
  1. HUMULIN-HUMAN  INSULIN (RDNA) :30% REGULAR, 70% NPH (H [Suspect]

REACTIONS (1)
  - DEATH [None]
